FAERS Safety Report 8443160-8 (Version None)
Quarter: 2012Q2

REPORT INFORMATION
  Report Type: 
  Country: None (occurrence: None)
  Receive Date: 20120615
  Receipt Date: 20120608
  Transmission Date: 20120825
  Serious: Yes (Hospitalization, Other)
  Sender: FDA-Public Use
  Company Number: US-RB-041314-12

PATIENT

DRUGS (1)
  1. BUPRENORPHINE [Suspect]
     Indication: PRODUCT USED FOR UNKNOWN INDICATION
     Dosage: UNKNOWN DOSAGE DETAILS
     Route: 065
     Dates: start: 20120101, end: 20120101

REACTIONS (1)
  - POISONING [None]
